FAERS Safety Report 23473474 (Version 1)
Quarter: 2024Q1

REPORT INFORMATION
  Report Type: Spontaneous
  Country: CN (occurrence: CN)
  Receive Date: 20240203
  Receipt Date: 20240203
  Transmission Date: 20240410
  Serious: Yes (Death, Life-Threatening, Hospitalization, Other)
  Sender: FDA-Public Use
  Company Number: None

PATIENT
  Age: 63 Year
  Sex: Male

DRUGS (14)
  1. DOXORUBICIN [Suspect]
     Active Substance: DOXORUBICIN
     Indication: B-cell prolymphocytic leukaemia
     Dosage: UNK, CYCLICAL  (2 COURSES) (R-CHOP)
     Route: 065
  2. DOXORUBICIN [Suspect]
     Active Substance: DOXORUBICIN
     Indication: B-cell lymphoma
     Dosage: UNK, CYCLICAL (3 COURSES) (R-CHOP)
     Route: 065
     Dates: start: 202007, end: 202009
  3. PREDNISOLONE [Suspect]
     Active Substance: PREDNISOLONE
     Indication: B-cell lymphoma
     Dosage: UNK, CYCLICAL (R-CVP) (1 COURSE)
     Route: 065
  4. PREDNISOLONE [Suspect]
     Active Substance: PREDNISOLONE
     Indication: B-cell prolymphocytic leukaemia
     Dosage: UNK, CYCLICAL  (2 COURSES) (R-CHOP)
     Route: 065
  5. PREDNISOLONE [Suspect]
     Active Substance: PREDNISOLONE
     Dosage: UNK, CYCLICAL (3 COURSES) (R-CHOP)
     Route: 065
     Dates: start: 202007, end: 202009
  6. RITUXIMAB [Suspect]
     Active Substance: RITUXIMAB
     Indication: B-cell lymphoma
     Dosage: UNK, CYCLICAL (R-CVP) (1 COURSE)
     Route: 065
  7. RITUXIMAB [Suspect]
     Active Substance: RITUXIMAB
     Indication: B-cell prolymphocytic leukaemia
     Dosage: UNK, CYCLICAL  (2 COURSES) (R-CHOP)
     Route: 065
  8. RITUXIMAB [Suspect]
     Active Substance: RITUXIMAB
     Dosage: UNK, CYCLICAL (3 COURSES) (R-CHOP)
     Route: 065
     Dates: start: 202007, end: 202009
  9. VINCRISTINE [Suspect]
     Active Substance: VINCRISTINE
     Indication: B-cell prolymphocytic leukaemia
     Dosage: UNK, CYCLICAL (R-CVP) (1 COURSE)
     Route: 065
  10. VINCRISTINE [Suspect]
     Active Substance: VINCRISTINE
     Indication: Leukaemia recurrent
     Dosage: UNK, CYCLICAL  (2 COURSES) (R-CHOP)
     Route: 065
  11. VINCRISTINE [Suspect]
     Active Substance: VINCRISTINE
     Dosage: UNK, CYCLICAL (3 COURSES) (R-CHOP)
     Route: 065
     Dates: start: 202007, end: 202009
  12. CYCLOPHOSPHAMIDE [Suspect]
     Active Substance: CYCLOPHOSPHAMIDE
     Indication: B-cell lymphoma
     Dosage: UNK, CYCLICAL (R-CVP) (1 COURSE)
     Route: 065
  13. CYCLOPHOSPHAMIDE [Suspect]
     Active Substance: CYCLOPHOSPHAMIDE
     Indication: B-cell prolymphocytic leukaemia
     Dosage: UNK, CYCLICAL (2 COURSES) (R-CHOP)
     Route: 065
  14. CYCLOPHOSPHAMIDE [Suspect]
     Active Substance: CYCLOPHOSPHAMIDE
     Dosage: UNK, CYCLICAL (3 COURSES) (R-CHOP)
     Route: 065
     Dates: start: 202007, end: 202009

REACTIONS (3)
  - Cardiac failure acute [Fatal]
  - Myelosuppression [Recovered/Resolved]
  - Pneumonia [Recovered/Resolved]

NARRATIVE: CASE EVENT DATE: 20200101
